FAERS Safety Report 10336918 (Version 1)
Quarter: 2014Q3

REPORT INFORMATION
  Report Type: Spontaneous
  Country: US (occurrence: US)
  Receive Date: 20140723
  Receipt Date: 20140723
  Transmission Date: 20150326
  Serious: Yes (Other)
  Sender: FDA-Public Use
  Company Number: US-PFIZER INC-2014202316

PATIENT
  Age: 74 Year
  Sex: Female
  Weight: 68.03 kg

DRUGS (3)
  1. LORAZEPAM. [Concomitant]
     Active Substance: LORAZEPAM
     Dosage: 1 MG, UNK
  2. DILANTIN [Suspect]
     Active Substance: PHENYTOIN
     Indication: CONVULSION
     Dosage: 200MG AS FIRST DOSE, 100MG NEXT DOSE AND 200MG AS HER LAST DOSE
     Route: 048
  3. TYLENOL [Concomitant]
     Active Substance: ACETAMINOPHEN
     Indication: PAIN
     Dosage: UNK

REACTIONS (5)
  - Cystitis [Unknown]
  - Rib fracture [Unknown]
  - Hypertension [Unknown]
  - Blood test abnormal [Unknown]
  - Drug ineffective [Unknown]
